FAERS Safety Report 13883337 (Version 1)
Quarter: 2017Q3

REPORT INFORMATION
  Report Type: Spontaneous
  Country: US (occurrence: US)
  Receive Date: 20170818
  Receipt Date: 20170818
  Transmission Date: 20171127
  Serious: No
  Sender: FDA-Public Use
  Company Number: US-NEOS THERAPEUTICS, LP-2017NEO00044

PATIENT
  Age: 9 Year
  Sex: Female

DRUGS (1)
  1. ADZENYS XR-ODT [Suspect]
     Active Substance: AMPHETAMINE

REACTIONS (3)
  - Nausea [Unknown]
  - Oral discomfort [Unknown]
  - Vomiting [Unknown]
